FAERS Safety Report 8214112-8 (Version None)
Quarter: 2012Q1

REPORT INFORMATION
  Report Type: 
  Country: None (occurrence: None)
  Receive Date: 20120314
  Receipt Date: 20120314
  Transmission Date: 20120608
  Serious: Yes (Hospitalization)
  Sender: FDA-Public Use
  Company Number: None

PATIENT
  Age: 50 Year
  Sex: Male
  Weight: 94.3 kg

DRUGS (7)
  1. METOPROLOL SUCCINATE [Suspect]
     Indication: HYPERTENSION
     Dosage: 50MG BID PO CHRONIC
     Route: 048
  2. FLUNISOLIDE [Concomitant]
  3. LORATADINE [Concomitant]
  4. APAP TAB [Concomitant]
  5. HYDROCHLOROTHIAZIDE [Concomitant]
  6. VERAPAMIL [Suspect]
     Indication: HYPERTENSION
     Dosage: 360MG DAILY PO CHRONIC
     Route: 048
  7. SIMVASTATIN [Concomitant]

REACTIONS (3)
  - PALPITATIONS [None]
  - BRADYCARDIA [None]
  - SINUS ARRHYTHMIA [None]
